FAERS Safety Report 17134977 (Version 2)
Quarter: 2020Q1

REPORT INFORMATION
  Report Type: Report from Study
  Country: US (occurrence: US)
  Receive Date: 20191210
  Receipt Date: 20200120
  Transmission Date: 20200409
  Serious: Yes (Other)
  Sender: FDA-Public Use
  Company Number: US-TEVA-2018-US-856445

PATIENT
  Age: 67 Year
  Sex: Male

DRUGS (1)
  1. AUSTEDO [Suspect]
     Active Substance: DEUTETRABENAZINE
     Indication: TARDIVE DYSKINESIA
     Dosage: HAD COMPLETED WEEK 3 OF TITRATION
     Route: 065
     Dates: start: 20171203

REACTIONS (5)
  - Insomnia [Recovering/Resolving]
  - Depression [Recovering/Resolving]
  - Tremor [Recovering/Resolving]
  - Nightmare [Unknown]
  - Hallucination [Recovering/Resolving]

NARRATIVE: CASE EVENT DATE: 20171203
